FAERS Safety Report 6494851-X (Version None)
Quarter: 2009Q4

REPORT INFORMATION
  Report Type: 
  Country: None (occurrence: None)
  Receive Date: 20091214
  Receipt Date: 20090401
  Transmission Date: 20100525
  Serious: Yes (Death)
  Sender: FDA-Public Use
  Company Number: US-BRISTOL-MYERS SQUIBB COMPANY-14570196

PATIENT
  Age: 68 Year
  Sex: Male

DRUGS (3)
  1. ABILIFY [Suspect]
     Indication: BIPOLAR DISORDER
     Dates: start: 20090309
  2. DEPAKOTE [Concomitant]
  3. TEMAZEPAM [Concomitant]

REACTIONS (1)
  - COMPLETED SUICIDE [None]
